FAERS Safety Report 13032520 (Version 1)
Quarter: 2016Q4

REPORT INFORMATION
  Report Type: Spontaneous
  Country: US (occurrence: US)
  Receive Date: 20161215
  Receipt Date: 20161215
  Transmission Date: 20170207
  Serious: Yes (Hospitalization)
  Sender: FDA-Public Use
  Company Number: US-ALLERGAN-1668872US

PATIENT
  Age: 40 Year
  Sex: Female

DRUGS (1)
  1. VIBERZI [Suspect]
     Active Substance: ELUXADOLINE
     Indication: INFLAMMATORY BOWEL DISEASE
     Dosage: 75 MG WITH FOOD, BID
     Route: 048

REACTIONS (3)
  - Pancreatitis [Unknown]
  - Incorrect dose administered [Unknown]
  - Off label use [Unknown]
